FAERS Safety Report 6227958-2 (Version None)
Quarter: 2009Q2

REPORT INFORMATION
  Report Type: 
  Country: None (occurrence: None)
  Receive Date: 20090611
  Receipt Date: 20090527
  Transmission Date: 20091009
  Serious: Yes (Other)
  Sender: FDA-Public Use
  Company Number: DE-GENENTECH-281559

PATIENT
  Sex: Female

DRUGS (4)
  1. LUCENTIS [Suspect]
     Indication: CHOROIDAL NEOVASCULARISATION
     Dosage: 0.5 MG, UNK
     Route: 031
     Dates: start: 20080604
  2. SIMVASTATIN [Concomitant]
     Indication: DRUG USE FOR UNKNOWN INDICATION
  3. LISINOPRIL [Concomitant]
     Indication: DRUG USE FOR UNKNOWN INDICATION
  4. PENTALONG [Concomitant]
     Indication: DRUG USE FOR UNKNOWN INDICATION

REACTIONS (2)
  - MEDICATION ERROR [None]
  - VISUAL ACUITY REDUCED [None]
